FAERS Safety Report 9565418 (Version 1)
Quarter: 2013Q3

REPORT INFORMATION
  Report Type: Spontaneous
  Country: SE (occurrence: SE)
  Receive Date: 20130930
  Receipt Date: 20130930
  Transmission Date: 20140515
  Serious: Yes (Other)
  Sender: FDA-Public Use
  Company Number: SE-PFIZER INC-2013273568

PATIENT
  Age: 36 Year
  Sex: Female

DRUGS (1)
  1. SALAZOPYRIN [Suspect]
     Dosage: 1 TABLET MORNING, 1 TABLET EVENING
     Dates: start: 201307, end: 20130724

REACTIONS (6)
  - Pyrexia [Unknown]
  - Lymphadenopathy [Unknown]
  - Rash [Unknown]
  - Psoriasis [Unknown]
  - Skin burning sensation [Unknown]
  - Paraesthesia [Unknown]
